FAERS Safety Report 10103646 (Version 3)
Quarter: 2016Q1

REPORT INFORMATION
  Report Type: Spontaneous
  Country: US (occurrence: US)
  Receive Date: 20140424
  Receipt Date: 20160308
  Transmission Date: 20160525
  Serious: Yes (Hospitalization)
  Sender: FDA-Public Use
  Company Number: US-JNJFOC-20140417376

PATIENT
  Age: 71 Year
  Sex: Male

DRUGS (15)
  1. CEFTIN [Suspect]
     Active Substance: CEFUROXIME AXETIL
     Indication: SINUS OPERATION
     Dates: start: 2014
  2. TYLENOL [Concomitant]
     Active Substance: ACETAMINOPHEN
  3. IMBRUVICA [Suspect]
     Active Substance: IBRUTINIB
     Indication: CHRONIC LYMPHOCYTIC LEUKAEMIA
     Route: 048
  4. PROBIOTIC [Concomitant]
     Active Substance: PROBIOTICS NOS
  5. IMBRUVICA [Suspect]
     Active Substance: IBRUTINIB
     Indication: CHRONIC LYMPHOCYTIC LEUKAEMIA
     Route: 048
     Dates: start: 20140401, end: 201404
  6. IMBRUVICA [Suspect]
     Active Substance: IBRUTINIB
     Indication: CHRONIC LYMPHOCYTIC LEUKAEMIA
     Route: 048
     Dates: start: 20140525
  7. MULTIVITAMINS [Concomitant]
     Active Substance: VITAMINS
     Dosage: 1 UNKNOWN
  8. VALTREX [Concomitant]
     Active Substance: VALACYCLOVIR HYDROCHLORIDE
     Route: 048
  9. DICLOFENAC SODIUM. [Concomitant]
     Active Substance: DICLOFENAC SODIUM
  10. AVODART [Concomitant]
     Active Substance: DUTASTERIDE
     Route: 048
     Dates: start: 2004
  11. LEXAPRO [Concomitant]
     Active Substance: ESCITALOPRAM OXALATE
     Dosage: 20 UNKNOWN
     Route: 048
  12. LORTAB [Concomitant]
     Active Substance: ACETAMINOPHEN\HYDROCODONE BITARTRATE
  13. FLOMAX [Concomitant]
     Active Substance: TAMSULOSIN HYDROCHLORIDE
     Route: 048
  14. LEXAPRO [Concomitant]
     Active Substance: ESCITALOPRAM OXALATE
     Route: 048
     Dates: start: 2009
  15. IMBRUVICA [Suspect]
     Active Substance: IBRUTINIB
     Indication: CHRONIC LYMPHOCYTIC LEUKAEMIA
     Route: 048
     Dates: start: 20140525

REACTIONS (17)
  - Sepsis [Recovering/Resolving]
  - Hypokalaemia [Recovered/Resolved]
  - Odynophagia [Recovering/Resolving]
  - Dehydration [Recovered/Resolved]
  - Stomatitis [Not Recovered/Not Resolved]
  - Mucosal inflammation [Recovering/Resolving]
  - Dysphagia [Recovering/Resolving]
  - Thrombocytopenia [Unknown]
  - Clostridium difficile infection [Recovered/Resolved]
  - Candida infection [Unknown]
  - Anaemia [Recovered/Resolved]
  - Leukocytosis [Unknown]
  - Neutropenia [Unknown]
  - Hyperhidrosis [Recovered/Resolved]
  - Oropharyngeal pain [Recovering/Resolving]
  - Pyrexia [Recovered/Resolved]
  - Hypocalcaemia [Recovered/Resolved]

NARRATIVE: CASE EVENT DATE: 2014
